FAERS Safety Report 14310024 (Version 1)
Quarter: 2017Q4

REPORT INFORMATION
  Report Type: Report from Study
  Country: FR (occurrence: FR)
  Receive Date: 20171220
  Receipt Date: 20171220
  Transmission Date: 20180321
  Serious: Yes (Life-Threatening, Other)
  Sender: FDA-Public Use
  Company Number: FR-PFIZER INC-2017536072

PATIENT
  Age: 11 Year
  Sex: Female

DRUGS (13)
  1. DOXORUBICIN HCL [Suspect]
     Active Substance: DOXORUBICIN HYDROCHLORIDE
     Indication: ACUTE LYMPHOCYTIC LEUKAEMIA
     Dosage: 26.8 MG, DAILY
     Route: 042
     Dates: start: 20171110, end: 20171124
  2. AMBISOME [Concomitant]
     Active Substance: AMPHOTERICIN B
     Dosage: UNK
  3. HYDROCORTISONE. [Suspect]
     Active Substance: HYDROCORTISONE
     Indication: ACUTE LYMPHOCYTIC LEUKAEMIA
     Dosage: 15 MG, DAILY
     Route: 042
     Dates: start: 20171113, end: 20171113
  4. ONCASPAR [Suspect]
     Active Substance: PEGASPARGASE
     Indication: ACUTE LYMPHOCYTIC LEUKAEMIA
     Dosage: 2680 IU, UNK
     Route: 042
     Dates: start: 20171113
  5. INEXIUM /01479302/ [Concomitant]
     Active Substance: ESOMEPRAZOLE MAGNESIUM
     Dosage: UNK
  6. BACTRIM [Concomitant]
     Active Substance: SULFAMETHOXAZOLE\TRIMETHOPRIM
     Dosage: UNK
  7. CYTARABINE. [Suspect]
     Active Substance: CYTARABINE
     Indication: ACUTE LYMPHOCYTIC LEUKAEMIA
     Dosage: 30 MG, DAILY
     Route: 037
     Dates: start: 20171113, end: 20171113
  8. LOVENOX [Concomitant]
     Active Substance: ENOXAPARIN SODIUM
     Dosage: UNK
  9. VINCRISTINE SULFATE. [Suspect]
     Active Substance: VINCRISTINE SULFATE
     Indication: ACUTE LYMPHOCYTIC LEUKAEMIA
     Dosage: 1.6 MG, DAILY
     Route: 042
     Dates: start: 20171110, end: 20171124
  10. METHOTREXATE SODIUM. [Suspect]
     Active Substance: METHOTREXATE SODIUM
     Indication: ACUTE LYMPHOCYTIC LEUKAEMIA
     Dosage: 15 MG, DAILY
     Route: 037
     Dates: start: 20171113, end: 20171113
  11. DEXAMETHASONE. [Suspect]
     Active Substance: DEXAMETHASONE
     Indication: ACUTE LYMPHOCYTIC LEUKAEMIA
     Dosage: 10.7 MG, DAILY
     Route: 048
     Dates: start: 20171110, end: 20171128
  12. FORLAX [Concomitant]
     Active Substance: POLYETHYLENE GLYCOL 4000
     Dosage: UNK
  13. ZOPHREN /00955301/ [Concomitant]
     Active Substance: ONDANSETRON
     Dosage: UNK

REACTIONS (2)
  - Septic shock [Not Recovered/Not Resolved]
  - Febrile bone marrow aplasia [Not Recovered/Not Resolved]

NARRATIVE: CASE EVENT DATE: 20171128
